FAERS Safety Report 15222696 (Version 1)
Quarter: 2018Q3

REPORT INFORMATION
  Report Type: Report from Study
  Country: US (occurrence: US)
  Receive Date: 20180731
  Receipt Date: 20180731
  Transmission Date: 20181010
  Serious: Yes (Other)
  Sender: FDA-Public Use
  Company Number: US-SHIRE-US201827566

PATIENT
  Age: 62 Year
  Sex: Female

DRUGS (1)
  1. HUMAN IMMUNOGLOBULIN; HYALURONIDASE [Suspect]
     Active Substance: HUMAN IMMUNOGLOBULIN G\HYALURONIDASE RECOMBINANT HUMAN
     Indication: PRIMARY IMMUNODEFICIENCY SYNDROME
     Route: 065

REACTIONS (9)
  - Infusion site swelling [Unknown]
  - Immunoglobulins decreased [Unknown]
  - Fibromyalgia [Unknown]
  - Anaemia [Unknown]
  - Eyelid infection [Unknown]
  - Atrial fibrillation [Unknown]
  - Adverse drug reaction [Unknown]
  - Asthma [Unknown]
  - Vitamin B12 deficiency [Unknown]

NARRATIVE: CASE EVENT DATE: 20180719
